FAERS Safety Report 4819206-2 (Version None)
Quarter: 2005Q4

REPORT INFORMATION
  Report Type: 
  Country: None (occurrence: None)
  Receive Date: 20051103
  Receipt Date: 20051017
  Transmission Date: 20060501
  Serious: Yes (Hospitalization, Other)
  Sender: FDA-Public Use
  Company Number: NL-GLAXOSMITHKLINE-B0397591A

PATIENT
  Age: 43 Year
  Sex: Female

DRUGS (3)
  1. ZYBAN [Suspect]
     Route: 065
     Dates: start: 20050924, end: 20051006
  2. VITAMIN B COMPLEX CAP [Concomitant]
  3. NICOTINE GUM [Concomitant]

REACTIONS (4)
  - BALANCE DISORDER [None]
  - EPILEPSY [None]
  - MUSCLE CONTRACTURE [None]
  - PARAESTHESIA [None]
